FAERS Safety Report 19451643 (Version 1)
Quarter: 2021Q2

REPORT INFORMATION
  Report Type: Spontaneous
  Country: US (occurrence: US)
  Receive Date: 20210623
  Receipt Date: 20210623
  Transmission Date: 20210717
  Serious: No
  Sender: FDA-Public Use
  Company Number: NVSC2021US135021

PATIENT
  Sex: Male

DRUGS (1)
  1. PROMACTA [Suspect]
     Active Substance: ELTROMBOPAG OLAMINE
     Indication: THROMBOCYTOPENIA
     Dosage: 50 MG (DAILY)
     Route: 048
     Dates: start: 20210520

REACTIONS (3)
  - Diarrhoea [Unknown]
  - Hypoaesthesia oral [Recovered/Resolved]
  - Headache [Unknown]
